FAERS Safety Report 6401818-6 (Version None)
Quarter: 2009Q4

REPORT INFORMATION
  Report Type: 
  Country: None (occurrence: None)
  Receive Date: 20091013
  Receipt Date: 20091013
  Transmission Date: 20100525
  Serious: Yes (Hospitalization)
  Sender: FDA-Public Use
  Company Number: None

PATIENT
  Sex: Female
  Weight: 57.96 kg

DRUGS (9)
  1. CARBOPLATIN [Suspect]
     Dosage: 342 MG
     Dates: end: 20090916
  2. TAXOL [Suspect]
     Dosage: 271 MG
     Dates: end: 20090916
  3. CALCIUM CARBONATE [Concomitant]
  4. FOSAMAX [Concomitant]
  5. INDERAL [Concomitant]
  6. MAGNESIUM [Concomitant]
  7. PRILOSEC [Concomitant]
  8. VITAMIN B COMPLEX CAP [Concomitant]
  9. XANAX [Concomitant]

REACTIONS (2)
  - DECREASED APPETITE [None]
  - INFECTION [None]
